FAERS Safety Report 17440032 (Version 15)
Quarter: 2022Q2

REPORT INFORMATION
  Report Type: Spontaneous
  Country: US (occurrence: US)
  Receive Date: 20200220
  Receipt Date: 20220607
  Transmission Date: 20220721
  Serious: Yes (Hospitalization, Other)
  Sender: FDA-Public Use
  Company Number: US-PFIZER INC-2020073893

PATIENT
  Age: 74 Year
  Sex: Male
  Weight: 81.633 kg

DRUGS (41)
  1. XELJANZ [Suspect]
     Active Substance: TOFACITINIB CITRATE
     Indication: Arthritis
     Dosage: 10 MG, 2X/DAY
     Route: 048
     Dates: start: 20190919, end: 201911
  2. XELJANZ [Suspect]
     Active Substance: TOFACITINIB CITRATE
     Indication: Colitis ulcerative
     Dosage: 5 MG, 2X/DAY (10 MG 1/2 TABLET TWICE A DAY)
     Route: 048
  3. XELJANZ [Suspect]
     Active Substance: TOFACITINIB CITRATE
     Dosage: 5 MG, 2X/DAY (5 MG IN THE MORNING AND 5 MG AT NIGHT )
     Route: 048
     Dates: start: 201909
  4. XELJANZ [Suspect]
     Active Substance: TOFACITINIB CITRATE
     Dosage: 5 MG, 2X/DAY (5 MG IN THE MORNING AND 5 MG AT NIGHT )
     Route: 048
     Dates: start: 201911
  5. XELJANZ [Suspect]
     Active Substance: TOFACITINIB CITRATE
     Dosage: 5 MG, 2X/DAY
     Route: 048
     Dates: start: 20191120
  6. XELJANZ [Suspect]
     Active Substance: TOFACITINIB CITRATE
     Dosage: 10 MG
  7. XELJANZ [Suspect]
     Active Substance: TOFACITINIB CITRATE
     Dosage: 5 MG, 2X/DAY
     Route: 048
     Dates: start: 20190919
  8. XELJANZ [Suspect]
     Active Substance: TOFACITINIB CITRATE
     Dosage: 10 MG
     Dates: start: 20190919
  9. XELJANZ [Suspect]
     Active Substance: TOFACITINIB CITRATE
     Dosage: 5 MG, 2X/DAY
     Dates: start: 2019
  10. NAPROXEN [Concomitant]
     Active Substance: NAPROXEN
     Indication: Arthralgia
     Dosage: 500 MG, 1X/DAY
     Route: 048
     Dates: start: 20200107, end: 20200201
  11. FERROUS SULFATE [Concomitant]
     Active Substance: FERROUS SULFATE
     Indication: Constipation
     Dosage: 324 MG, 1X/DAY
     Route: 048
     Dates: start: 20200124
  12. PROZAC [Concomitant]
     Active Substance: FLUOXETINE HYDROCHLORIDE
     Dosage: UNK
  13. FLUOXETINE [Concomitant]
     Active Substance: FLUOXETINE HYDROCHLORIDE
     Indication: Anxiety
     Dosage: 20 MG, 1X/DAY (AT BED TIME BY MOUTH)
     Route: 048
  14. LEVOTHYROXINE [Concomitant]
     Active Substance: LEVOTHYROXINE
     Indication: Hypothyroidism
     Dosage: 50 UG, 1X/DAY  (EARLY A.M)
     Route: 048
  15. NEXIUM 24HR [Concomitant]
     Active Substance: ESOMEPRAZOLE MAGNESIUM
     Indication: Gastrooesophageal reflux disease
     Dosage: 20 MG, 1X/DAY (1-20 MG CAP AM BEFORE)
  16. NEXIUM 24HR [Concomitant]
     Active Substance: ESOMEPRAZOLE MAGNESIUM
     Dosage: 22.5 MG, 1X/DAY
     Route: 048
  17. PROBIOTIC ACIDOPHILUS [LACTOBACILLUS ACIDOPHILUS] [Concomitant]
     Indication: Supplementation therapy
     Dosage: 2 DF, DAILY
  18. PROBIOTIC ACIDOPHILUS [LACTOBACILLUS ACIDOPHILUS] [Concomitant]
     Dosage: 2 DF
  19. FUROSEMIDE [Concomitant]
     Active Substance: FUROSEMIDE
     Indication: Swelling
     Dosage: 20 MG, 1X/DAY
     Dates: start: 20200107
  20. CENTRUM SILVER [ASCORBIC ACID;CALCIUM;MINERALS NOS;RETINOL;TOCOPHERYL [Concomitant]
     Indication: Supplementation therapy
     Dosage: 1 DF, 1X/DAY (AFTER BREAKFAST)
     Route: 048
  21. VITAMIN C [Concomitant]
     Active Substance: ASCORBIC ACID
     Indication: Supplementation therapy
     Dosage: 1000 MG, 1X/DAY (1 AFTER BREAKFAST)
     Route: 048
  22. VITAMIN B12 [Concomitant]
     Active Substance: CYANOCOBALAMIN
     Indication: Supplementation therapy
     Dosage: 3000 UG, DAILY (GUMMIES 3 AFTER BREAKFAST)
     Route: 048
  23. VITAMIN B12 [Concomitant]
     Active Substance: CYANOCOBALAMIN
     Dosage: 3000 UG, 1X/DAY
     Route: 048
  24. VITAMIN D3 [Concomitant]
     Active Substance: CHOLECALCIFEROL
     Indication: Supplementation therapy
     Dosage: 100 UG, DAILY (GUMMIES 2 AFTER BREAKFAST)
  25. VITAMIN D3 [Concomitant]
     Active Substance: CHOLECALCIFEROL
     Dosage: 50 UG, 1X/DAY
     Route: 048
  26. FLOMAX [Concomitant]
     Active Substance: TAMSULOSIN HYDROCHLORIDE
     Indication: Prostatomegaly
     Dosage: 0.4 MG, 1X/DAY
     Route: 048
  27. FINASTERIDE [Concomitant]
     Active Substance: FINASTERIDE
     Indication: Prostatomegaly
     Dosage: 0.5 MG, 1X/DAY
  28. FINASTERIDE [Concomitant]
     Active Substance: FINASTERIDE
     Dosage: 5 MG, 1X/DAY, (5MG BY MOUTH AT BEDTIME)
     Route: 048
  29. TYLENOL 8HR [Concomitant]
     Active Substance: ACETAMINOPHEN
     Indication: Arthritis
     Dosage: 1950 MG, AS NEEDED
  30. CALMOSEPTINE [MENTHOL;ZINC OXIDE] [Concomitant]
     Dosage: UNK, AS NEEDED
     Route: 061
  31. DESITIN CREAMY [Concomitant]
     Indication: Rectal haemorrhage
     Dosage: UNK, AS NEEDED
  32. LACTASE [Concomitant]
     Active Substance: LACTASE
     Indication: Lactose intolerance
     Dosage: 9000 IU, AS NEEDED
  33. LACTASE [Concomitant]
     Active Substance: LACTASE
     Dosage: UNK, (2 CHEWABLES PRIOR TO EATING OR DRINKING DAIRY AS NEEDED)
  34. LEVSIN [Concomitant]
     Active Substance: HYOSCYAMINE SULFATE
     Indication: Muscle spasms
     Dosage: 0.125 MG, AS NEEDED
  35. HERBALS\TURMERIC [Concomitant]
     Active Substance: HERBALS\TURMERIC
     Indication: Supplementation therapy
     Dosage: 500 MG, 1X/DAY
  36. OMEGA 3 FISH OIL [FISH OIL] [Concomitant]
     Indication: Supplementation therapy
     Dosage: 1500 MG, 1X/DAY
     Route: 048
  37. GINGER ROOT SUNDOWN [Concomitant]
     Indication: Supplementation therapy
     Dosage: 550 MG, 1X/DAY
     Route: 048
  38. GLUCOSAMINE/CHONDROITIN [CHONDROITIN SULFATE;GLUCOSAMINE] [Concomitant]
     Indication: Arthropathy
     Dosage: 3000 MG, DAILY (2 1500MG TABLETS)
     Route: 048
  39. MODERNA COVID-19 VACCINE [Concomitant]
     Active Substance: ELASOMERAN
     Dosage: FIRST DOSE
     Dates: start: 20210206
  40. MODERNA COVID-19 VACCINE [Concomitant]
     Active Substance: ELASOMERAN
     Dosage: SECOND DOSE
     Dates: start: 20210305
  41. MODERNA COVID-19 VACCINE [Concomitant]
     Active Substance: ELASOMERAN
     Dosage: BOOSTER DOSE
     Dates: start: 20211020

REACTIONS (31)
  - Haematochezia [Recovered/Resolved]
  - COVID-19 [Recovered/Resolved]
  - COVID-19 pneumonia [Unknown]
  - Malignant melanoma [Recovered/Resolved]
  - Diverticulitis [Recovering/Resolving]
  - Atypical pneumonia [Recovering/Resolving]
  - Muscle spasms [Recovered/Resolved]
  - Pain [Recovered/Resolved]
  - Arthralgia [Recovered/Resolved]
  - Condition aggravated [Recovered/Resolved]
  - Decreased immune responsiveness [Recovered/Resolved]
  - White blood cell count decreased [Recovered/Resolved]
  - Red blood cell count decreased [Recovered/Resolved]
  - Renal cell carcinoma [Unknown]
  - Renal cyst [Unknown]
  - Renal cancer [Unknown]
  - Basal cell carcinoma [Unknown]
  - Haemoglobin decreased [Not Recovered/Not Resolved]
  - Haematocrit decreased [Not Recovered/Not Resolved]
  - Peripheral swelling [Unknown]
  - Joint swelling [Unknown]
  - Asthenia [Not Recovered/Not Resolved]
  - Fatigue [Not Recovered/Not Resolved]
  - Malaise [Unknown]
  - Nerve compression [Unknown]
  - Back disorder [Unknown]
  - Stenosis [Unknown]
  - Blood pressure abnormal [Unknown]
  - Sinus disorder [Unknown]
  - Blood sodium decreased [Unknown]
  - Blood potassium decreased [Unknown]

NARRATIVE: CASE EVENT DATE: 20180101
